FAERS Safety Report 10014779 (Version 1)
Quarter: 2014Q1

REPORT INFORMATION
  Report Type: Spontaneous
  Country: US (occurrence: US)
  Receive Date: 20140317
  Receipt Date: 20140317
  Transmission Date: 20141002
  Serious: No
  Sender: FDA-Public Use
  Company Number: US-009507513-1403USA002581

PATIENT
  Age: 30 Year
  Sex: Male

DRUGS (3)
  1. ISENTRESS [Suspect]
     Indication: HIV INFECTION
     Route: 048
  2. TRUVADA [Suspect]
  3. IMITREX (SUMATRIPTAN) [Concomitant]

REACTIONS (1)
  - Headache [Unknown]
